FAERS Safety Report 25663055 (Version 1)
Quarter: 2025Q3

REPORT INFORMATION
  Report Type: Spontaneous
  Country: BR (occurrence: BR)
  Receive Date: 20250811
  Receipt Date: 20250811
  Transmission Date: 20251021
  Serious: Yes (Other)
  Sender: ACCORD
  Company Number: BR-Accord-494158

PATIENT
  Age: 1 Decade
  Sex: Female

DRUGS (1)
  1. ZOLEDRONIC ACID [Suspect]
     Active Substance: ZOLEDRONIC ACID
     Indication: Osteogenesis imperfecta
     Dosage: ZOLEDRONIC ACID EVERY 6 MONTHS, FOLLOWING STANDARD DOSING PROTOCOLS

REACTIONS (8)
  - Multiple fractures [Recovered/Resolved]
  - Bone density decreased [Unknown]
  - Off label use [Unknown]
  - Growth disorder [Recovering/Resolving]
  - Tibia fracture [Unknown]
  - Ankle fracture [Unknown]
  - Clavicle fracture [Unknown]
  - Femur fracture [Unknown]
